FAERS Safety Report 8882364 (Version 1)
Quarter: 2012Q4

REPORT INFORMATION
  Report Type: Report from Study
  Country: DE (occurrence: DE)
  Receive Date: 20121102
  Receipt Date: 20121102
  Transmission Date: 20130627
  Serious: Yes (Hospitalization)
  Sender: FDA-Public Use
  Company Number: PHHO2009DE14599

PATIENT
  Age: 68 None
  Sex: Male
  Weight: 84.1 kg

DRUGS (5)
  1. ALISKIREN [Suspect]
     Indication: CARDIAC FAILURE ACUTE
     Route: 048
     Dates: start: 20090928, end: 20091113
  2. BISOPROLOL [Concomitant]
     Indication: HYPERTENSION
     Dosage: 3 mg, UNK
     Route: 048
     Dates: start: 20090926
  3. RAMIPRIL [Concomitant]
     Indication: HYPERTENSION
     Dosage: 2.5 mg, UNK
     Route: 048
     Dates: start: 20080311, end: 20091002
  4. RAMIPRIL [Concomitant]
     Dosage: 2.5 mg
     Route: 048
     Dates: start: 20091003
  5. TOREM [Concomitant]
     Indication: HYPERTENSION
     Dosage: 20-10-0 mg
     Route: 048
     Dates: start: 200803

REACTIONS (3)
  - Hypotension [Recovered/Resolved]
  - Syncope [Recovered/Resolved]
  - Fall [Recovered/Resolved]
